FAERS Safety Report 6130422-2 (Version None)
Quarter: 2009Q1

REPORT INFORMATION
  Report Type: 
  Country: None (occurrence: None)
  Receive Date: 20090324
  Receipt Date: 20090313
  Transmission Date: 20090719
  Serious: Yes (Death, Hospitalization, Other)
  Sender: FDA-Public Use
  Company Number: HR-ELI_LILLY_AND_COMPANY-HR200903003941

PATIENT
  Sex: Female

DRUGS (5)
  1. ZYPREXA [Suspect]
     Indication: DEMENTIA
     Dosage: 20 MG, 2/D
     Route: 048
     Dates: start: 20090117
  2. HALDOL [Concomitant]
     Dates: end: 20090116
  3. PRAZINE [Concomitant]
     Dosage: 75 MG, DAILY (1/D)
     Dates: start: 20090112, end: 20090131
  4. CERSON [Concomitant]
     Dosage: 5 MG,
     Dates: start: 20090112, end: 20090131
  5. APAURIN [Concomitant]
     Dosage: 15 MG,
     Dates: start: 20090126, end: 20090131

REACTIONS (6)
  - ATAXIA [None]
  - DEATH [None]
  - PYREXIA [None]
  - SLEEP DISORDER [None]
  - SOMNOLENCE [None]
  - SOPOR [None]
